FAERS Safety Report 16474540 (Version 1)
Quarter: 2019Q2

REPORT INFORMATION
  Report Type: Spontaneous
  Country: CA (occurrence: CA)
  Receive Date: 20190625
  Receipt Date: 20190625
  Transmission Date: 20190711
  Serious: Yes (Other)
  Sender: FDA-Public Use
  Company Number: PHHY2019CA142168

PATIENT
  Age: 35 Year
  Sex: Male

DRUGS (1)
  1. GLEEVEC [Suspect]
     Active Substance: IMATINIB MESYLATE
     Indication: GASTROINTESTINAL STROMAL TUMOUR
     Dosage: UNK
     Route: 048
     Dates: start: 2016, end: 2019

REACTIONS (3)
  - Multiple sclerosis [Unknown]
  - Demyelination [Unknown]
  - Optic neuritis [Unknown]

NARRATIVE: CASE EVENT DATE: 201701
